FAERS Safety Report 9932108 (Version 1)
Quarter: 2014Q1

REPORT INFORMATION
  Report Type: Spontaneous
  Country: US (occurrence: US)
  Receive Date: 20140228
  Receipt Date: 20140228
  Transmission Date: 20141002
  Serious: No
  Sender: FDA-Public Use
  Company Number: US-ABBVIE-13P-163-1129101-00

PATIENT
  Age: 58 Year
  Sex: Male
  Weight: 115.77 kg

DRUGS (7)
  1. ANDROGEL 1% [Suspect]
     Indication: BLOOD TESTOSTERONE DECREASED
     Dosage: 2-3 PUMP ACTUATIONS
     Route: 061
     Dates: start: 2007
  2. ANDROGEL 1% [Suspect]
     Dosage: 7 PUMP ACTUATIONS
     Route: 061
     Dates: start: 201306
  3. ANDROGEL 1.62% [Suspect]
     Indication: BLOOD TESTOSTERONE DECREASED
     Route: 061
     Dates: start: 201302
  4. AXIRON [Suspect]
     Indication: PRODUCT USED FOR UNKNOWN INDICATION
     Dates: start: 2013, end: 2013
  5. VITAMIN D NOS [Concomitant]
     Indication: VITAMIN D DEFICIENCY
  6. METFORMIN [Concomitant]
     Indication: TYPE 2 DIABETES MELLITUS
  7. LEVOXYL [Concomitant]
     Indication: HYPOTHYROIDISM

REACTIONS (8)
  - Expired drug administered [Not Recovered/Not Resolved]
  - Blood testosterone decreased [Not Recovered/Not Resolved]
  - Prostate infection [Recovered/Resolved]
  - Prostatomegaly [Recovered/Resolved]
  - Prostatic specific antigen increased [Recovered/Resolved]
  - Emotional disorder [Not Recovered/Not Resolved]
  - Sexual dysfunction [Not Recovered/Not Resolved]
  - Medication error [Not Recovered/Not Resolved]
